FAERS Safety Report 4942941-2 (Version None)
Quarter: 2006Q1

REPORT INFORMATION
  Report Type: 
  Country: None (occurrence: None)
  Receive Date: 20060309
  Receipt Date: 20060224
  Transmission Date: 20060701
  Serious: Yes (Other)
  Sender: FDA-Public Use
  Company Number: 222530

PATIENT
  Age: 67 Year
  Sex: Female
  Weight: 53 kg

DRUGS (7)
  1. RITUXAN [Suspect]
     Indication: NON-HODGKIN'S LYMPHOMA
     Dosage: 550 MG, INTRAVENOUS
     Route: 042
     Dates: start: 20041006, end: 20041124
  2. DOXORUBICIN HYDROCHLORIDE [Suspect]
     Indication: NON-HODGKIN'S LYMPHOMA
     Dosage: 70 MG, INTRAVENOUS
     Route: 042
     Dates: start: 20041006, end: 20050126
  3. CYCLOPHOSPHAMIDE [Suspect]
     Indication: NON-HODGKIN'S LYMPHOMA
     Dosage: 1090 MG, INTRAVENOUS
     Route: 042
     Dates: start: 20041006, end: 20050126
  4. ONCOVIN [Suspect]
     Indication: NON-HODGKIN'S LYMPHOMA
     Dosage: 2 MG, INTRAVENOUS
     Route: 042
     Dates: start: 20041006, end: 20050126
  5. BRUFEN (IBUPROFEN) [Concomitant]
  6. POLARAMINE [Concomitant]
  7. NORVASC [Concomitant]

REACTIONS (4)
  - ASPARTATE AMINOTRANSFERASE INCREASED [None]
  - HAEMOGLOBIN DECREASED [None]
  - NEUTROPHIL COUNT DECREASED [None]
  - WHITE BLOOD CELL COUNT DECREASED [None]
